FAERS Safety Report 8878426 (Version 1)
Quarter: 2012Q4

REPORT INFORMATION
  Report Type: 
  Country: US (occurrence: US)
  Receive Date: 20121025
  Receipt Date: 20121025
  Transmission Date: 20130627
  Serious: No
  Sender: FDA-Public Use
  Company Number: US-AMGEN-USASP2012022227

PATIENT
  Age: 69 Year
  Sex: Female

DRUGS (9)
  1. ENBREL [Suspect]
     Indication: PSORIATIC ARTHROPATHY
     Dosage: 50 mg, qwk
     Dates: start: 201202
  2. ASPIRIN [Concomitant]
     Dosage: UNK mg, UNK
  3. LIPITOR [Concomitant]
  4. COLCRYS [Concomitant]
  5. FLAXSEED OIL [Concomitant]
  6. VITAMIN D /00107901/ [Concomitant]
  7. FISH OIL [Concomitant]
  8. PREVACID [Concomitant]
  9. LISINOPRIL [Concomitant]

REACTIONS (1)
  - Injection site rash [Unknown]
